FAERS Safety Report 16948811 (Version 2)
Quarter: 2020Q1

REPORT INFORMATION
  Report Type: Spontaneous
  Country: US (occurrence: US)
  Receive Date: 20191023
  Receipt Date: 20200305
  Transmission Date: 20200409
  Serious: Yes (Other)
  Sender: FDA-Public Use
  Company Number: US-NAPPMUNDI-USA-2019-0148594

PATIENT
  Sex: Male

DRUGS (2)
  1. OXYCODONE HCL TABLETS (91-490) [Suspect]
     Active Substance: OXYCODONE HYDROCHLORIDE
     Indication: PRODUCT USED FOR UNKNOWN INDICATION
     Dosage: 10 MG, QID
     Route: 048
  2. OXYCONTIN [Suspect]
     Active Substance: OXYCODONE HYDROCHLORIDE
     Indication: PRODUCT USED FOR UNKNOWN INDICATION
     Dosage: 40 MG, Q12H
     Route: 048

REACTIONS (21)
  - Multi-organ disorder [Unknown]
  - Amnesia [Unknown]
  - Disturbance in attention [Unknown]
  - Brain injury [Unknown]
  - Blindness [Unknown]
  - Mental disorder [Unknown]
  - Irritability [Unknown]
  - Communication disorder [Unknown]
  - Seizure [Unknown]
  - Coordination abnormal [Unknown]
  - Dysgraphia [Unknown]
  - Psychological trauma [Not Recovered/Not Resolved]
  - Anxiety [Unknown]
  - Drug dependence [Unknown]
  - Balance disorder [Unknown]
  - Loss of personal independence in daily activities [Unknown]
  - Deafness [Unknown]
  - Liver injury [Unknown]
  - Confusional state [Unknown]
  - Reading disorder [Unknown]
  - Depression [Unknown]
